FAERS Safety Report 5070285-X (Version None)
Quarter: 2006Q3

REPORT INFORMATION
  Report Type: 
  Country: None (occurrence: None)
  Receive Date: 20060731
  Receipt Date: 20060714
  Transmission Date: 20061208
  Serious: Yes (Hospitalization)
  Sender: FDA-Public Use
  Company Number: 220940

PATIENT
  Age: 64 Year
  Sex: Female
  Weight: 55 kg

DRUGS (4)
  1. AVASTIN [Suspect]
     Indication: COLON CANCER
     Dosage: 419 MG Q3M INTRAVENOUS
     Route: 042
     Dates: start: 20050928, end: 20060123
  2. OXALIPLATIN (OXALIPLATIN) [Suspect]
     Indication: COLON CANCER
     Dosage: 201 MG Q3W INTRAVENOUS
     Route: 042
     Dates: start: 20050928, end: 20060123
  3. CAPECITABINE (CAPECITABINE) [Suspect]
     Indication: COLON CANCER
     Dosage: 1500 MG BID ORAL
     Route: 048
     Dates: start: 20050928, end: 20060123
  4. ENALAPRIL MALEATE [Concomitant]

REACTIONS (4)
  - BRONCHOSPASM [None]
  - DIARRHOEA [None]
  - FEBRILE NEUTROPENIA [None]
  - RENAL FAILURE [None]
